FAERS Safety Report 8118536-9 (Version None)
Quarter: 2012Q1

REPORT INFORMATION
  Report Type: 
  Country: None (occurrence: None)
  Receive Date: 20120202
  Receipt Date: 20120119
  Transmission Date: 20120608
  Serious: Yes (Hospitalization, Disabling, Other)
  Sender: FDA-Public Use
  Company Number: 2012MA000938

PATIENT
  Sex: Female
  Weight: 94.3482 kg

DRUGS (23)
  1. DOXYCYCLINE [Concomitant]
  2. ALBUTEROL [Concomitant]
  3. GLIZIPIDE [Concomitant]
  4. LISINOPRIL [Concomitant]
  5. METFORMIN HCL [Concomitant]
  6. PRILOSEC [Concomitant]
  7. SPIRONOLACTONE [Concomitant]
  8. XANAX [Concomitant]
  9. COREG [Concomitant]
  10. NITROGLYCERIN [Concomitant]
  11. AMIODARONE [Concomitant]
  12. DIGOXIN [Suspect]
     Dosage: 0.25 MG; QD; PO
     Route: 048
     Dates: start: 20080324, end: 20080928
  13. COMBIVENT [Concomitant]
  14. FLONASE [Concomitant]
  15. ZOCOR [Concomitant]
  16. OMEGA-3 FATTY ACIDS [Concomitant]
  17. COLACE [Concomitant]
  18. COUMADIN [Concomitant]
  19. LIPITOR [Concomitant]
  20. PLAVIX [Concomitant]
  21. LASIX [Concomitant]
  22. ATENOLOL [Concomitant]
  23. ASPIRIN [Suspect]

REACTIONS (26)
  - CORONARY ARTERY DISEASE [None]
  - PERICARDIAL EFFUSION [None]
  - PULMONARY HYPERTENSION [None]
  - DIABETES MELLITUS [None]
  - CHRONIC SINUSITIS [None]
  - RESPIRATORY DISTRESS [None]
  - BALANCE DISORDER [None]
  - ATAXIA [None]
  - HYPERTENSION [None]
  - ANXIETY [None]
  - BLINDNESS UNILATERAL [None]
  - NAUSEA [None]
  - LACUNAR INFARCTION [None]
  - PNEUMONIA [None]
  - HEADACHE [None]
  - CEREBROVASCULAR ACCIDENT [None]
  - ATRIOVENTRICULAR BLOCK [None]
  - ATRIAL FIBRILLATION [None]
  - CARDIAC FAILURE CONGESTIVE [None]
  - DYSLIPIDAEMIA [None]
  - CARDIOMYOPATHY [None]
  - VENTRICULAR EXTRASYSTOLES [None]
  - DIZZINESS [None]
  - PRODUCTIVE COUGH [None]
  - BRONCHITIS [None]
  - MYOCARDIAL ISCHAEMIA [None]
